FAERS Safety Report 19860698 (Version 1)
Quarter: 2021Q3

REPORT INFORMATION
  Report Type: Report from Study
  Country: FR (occurrence: FR)
  Receive Date: 20210920
  Receipt Date: 20210920
  Transmission Date: 20211014
  Serious: Yes (Other)
  Sender: FDA-Public Use
  Company Number: FR-TAKEDA-2021TUS057640

PATIENT
  Age: 7 Year
  Sex: Female

DRUGS (11)
  1. TEDUGLUTIDE [Suspect]
     Active Substance: TEDUGLUTIDE
     Dosage: 1 MILLIGRAM, QD
     Route: 065
     Dates: start: 20210821, end: 20210909
  2. FAMOTIDINE. [Concomitant]
     Active Substance: FAMOTIDINE
     Indication: SHORT-BOWEL SYNDROME
     Dosage: 9999.00 UNK, QD
     Route: 037
  3. DELURSAN [Concomitant]
     Active Substance: URSODIOL
     Indication: SHORT-BOWEL SYNDROME
     Dosage: 250.00 MILLIGRAM, QD
     Route: 048
  4. TEDUGLUTIDE [Suspect]
     Active Substance: TEDUGLUTIDE
     Indication: SHORT-BOWEL SYNDROME
     Dosage: 1.2 MILLIGRAM
     Route: 065
     Dates: start: 20210614, end: 20210820
  5. TEDUGLUTIDE [Suspect]
     Active Substance: TEDUGLUTIDE
     Indication: SHORT-BOWEL SYNDROME
     Dosage: 1.2 MILLIGRAM
     Route: 065
     Dates: start: 20210614, end: 20210820
  6. TEDUGLUTIDE [Suspect]
     Active Substance: TEDUGLUTIDE
     Dosage: 1 MILLIGRAM, QD
     Route: 065
     Dates: start: 20210821, end: 20210909
  7. MYCOSTER [Concomitant]
     Active Substance: CICLOPIROX\CICLOPIROX OLAMINE
     Indication: GASTROSTOMY TUBE SITE COMPLICATION
     Dosage: 1 UNK
     Route: 061
     Dates: start: 202102, end: 202103
  8. TEDUGLUTIDE [Suspect]
     Active Substance: TEDUGLUTIDE
     Indication: SHORT-BOWEL SYNDROME
     Dosage: 1.2 MILLIGRAM
     Route: 065
     Dates: start: 20210614, end: 20210820
  9. TEDUGLUTIDE [Suspect]
     Active Substance: TEDUGLUTIDE
     Dosage: 1 MILLIGRAM, QD
     Route: 065
     Dates: start: 20210821, end: 20210909
  10. TEDUGLUTIDE [Suspect]
     Active Substance: TEDUGLUTIDE
     Indication: SHORT-BOWEL SYNDROME
     Dosage: 1.2 MILLIGRAM
     Route: 065
     Dates: start: 20210614, end: 20210820
  11. TEDUGLUTIDE [Suspect]
     Active Substance: TEDUGLUTIDE
     Dosage: 1 MILLIGRAM, QD
     Route: 065
     Dates: start: 20210821, end: 20210909

REACTIONS (1)
  - Intestinal prolapse [Not Recovered/Not Resolved]

NARRATIVE: CASE EVENT DATE: 20210715
